FAERS Safety Report 8834309 (Version 1)
Quarter: 2012Q4

REPORT INFORMATION
  Report Type: 
  Country: GB (occurrence: GB)
  Receive Date: 20121010
  Receipt Date: 20121010
  Transmission Date: 20130627
  Serious: Yes (Other)
  Sender: FDA-Public Use
  Company Number: PHHY2012GB087021

PATIENT
  Age: 48 Year
  Sex: Male
  Weight: 72 kg

DRUGS (6)
  1. OXALIPLATIN [Suspect]
     Indication: COLORECTAL CANCER
     Dosage: 130 mg/m2, per cycle
     Route: 042
     Dates: start: 20080305, end: 20081020
  2. IRINOTECAN [Suspect]
     Indication: CHEMOTHERAPY
  3. FLUOROURACIL [Suspect]
     Indication: CHEMOTHERAPY
  4. FOLINIC ACID [Suspect]
     Indication: CHEMOTHERAPY
  5. MAXOLON [Concomitant]
     Indication: NAUSEA
     Route: 048
  6. ANTIBIOTICS [Concomitant]
     Indication: NASOPHARYNGITIS
     Route: 048

REACTIONS (8)
  - Renal impairment [Recovering/Resolving]
  - Sinusitis [Recovering/Resolving]
  - Nasopharyngitis [Recovering/Resolving]
  - Neuropathy peripheral [Recovering/Resolving]
  - Hypoaesthesia [Recovering/Resolving]
  - Vein pain [Recovering/Resolving]
  - Decreased appetite [Recovering/Resolving]
  - Diarrhoea [Recovering/Resolving]
